FAERS Safety Report 5917033-6 (Version None)
Quarter: 2008Q4

REPORT INFORMATION
  Report Type: 
  Country: None (occurrence: None)
  Receive Date: 20081009
  Receipt Date: 20081009
  Transmission Date: 20090506
  Serious: Yes (Death)
  Sender: FDA-Public Use
  Company Number: None

PATIENT
  Age: 42 Year
  Sex: Male
  Weight: 90.7194 kg

DRUGS (2)
  1. TOPROL-XL [Suspect]
     Indication: BLOOD PRESSURE
     Dosage: 1 TABLET DAILY PO
     Route: 048
     Dates: start: 20060415, end: 20060820
  2. TOPROL-XL [Suspect]
     Indication: SUPRAVENTRICULAR TACHYCARDIA
     Dosage: 1 TABLET DAILY PO
     Route: 048
     Dates: start: 20060415, end: 20060820

REACTIONS (5)
  - AMNESIA [None]
  - CHEST PAIN [None]
  - RENAL FAILURE [None]
  - SKIN DISCOLOURATION [None]
  - WEIGHT INCREASED [None]
